FAERS Safety Report 15991312 (Version 1)
Quarter: 2019Q1

REPORT INFORMATION
  Report Type: Spontaneous
  Country: FR (occurrence: FR)
  Receive Date: 20190221
  Receipt Date: 20190221
  Transmission Date: 20190418
  Serious: Yes (Other)
  Sender: FDA-Public Use
  Company Number: FR-PFIZER INC-2019072311

PATIENT
  Age: 22 Year
  Sex: Male

DRUGS (5)
  1. DEPAKINE [VALPROATE SODIUM] [Suspect]
     Active Substance: VALPROATE SODIUM
     Dosage: UNK
     Route: 048
  2. IBUPROFEN. [Suspect]
     Active Substance: IBUPROFEN
     Dosage: UNK
     Route: 042
  3. LEXOMIL [Suspect]
     Active Substance: BROMAZEPAM
     Dosage: 13 MG, UNK
     Route: 042
     Dates: start: 20181212
  4. COCAINE [Suspect]
     Active Substance: COCAINE
     Indication: DRUG ABUSE
     Dosage: UNK
     Route: 042
  5. ALCOHOL. [Suspect]
     Active Substance: ALCOHOL
     Indication: ALCOHOL USE
     Dosage: UNK
     Route: 048

REACTIONS (3)
  - Dysarthria [Recovered/Resolved]
  - Substance dependence [Not Recovered/Not Resolved]
  - Aphasia [Recovered/Resolved]

NARRATIVE: CASE EVENT DATE: 20181212
